FAERS Safety Report 13635334 (Version 1)
Quarter: 2017Q2

REPORT INFORMATION
  Report Type: Spontaneous
  Country: US (occurrence: US)
  Receive Date: 20170531
  Receipt Date: 20170531
  Transmission Date: 20170830
  Serious: No
  Sender: FDA-Public Use
  Company Number: US-ASTELLAS-1701568

PATIENT
  Sex: Female

DRUGS (6)
  1. AMLODIPINE BESYLATE. [Concomitant]
     Active Substance: AMLODIPINE BESYLATE
  2. BENZONATATE. [Concomitant]
     Active Substance: BENZONATATE
  3. TARCEVA [Suspect]
     Active Substance: ERLOTINIB HYDROCHLORIDE
     Indication: LUNG NEOPLASM MALIGNANT
     Route: 048
     Dates: start: 20100219
  4. DIPHENOXYLATE W ATROPINE [Concomitant]
  5. ATENOLOL. [Concomitant]
     Active Substance: ATENOLOL
  6. FLAXSEED [Concomitant]
     Active Substance: FLAX SEED

REACTIONS (3)
  - Diarrhoea [Unknown]
  - Rash [Unknown]
  - Skin mass [Unknown]
